FAERS Safety Report 25487023 (Version 2)
Quarter: 2025Q3

REPORT INFORMATION
  Report Type: Spontaneous
  Country: US (occurrence: US)
  Receive Date: 20250627
  Receipt Date: 20250731
  Transmission Date: 20251020
  Serious: No
  Sender: ABBVIE
  Company Number: US-ABBVIE-6345945

PATIENT
  Age: 76 Year
  Sex: Female
  Weight: 84 kg

DRUGS (1)
  1. SKYRIZI [Suspect]
     Active Substance: RISANKIZUMAB-RZAA
     Indication: Product used for unknown indication
     Dosage: FORM STRENGTH: 150 MILLIGRAM
     Route: 058
     Dates: start: 2023

REACTIONS (4)
  - Pain [Unknown]
  - Dyskinesia [Unknown]
  - Pain in extremity [Unknown]
  - Injection site discharge [Unknown]

NARRATIVE: CASE EVENT DATE: 20250624
